FAERS Safety Report 4510981-3 (Version None)
Quarter: 2004Q4

REPORT INFORMATION
  Report Type: 
  Country: None (occurrence: None)
  Receive Date: 20040928
  Receipt Date: 20040811
  Transmission Date: 20050328
  Serious: Yes (Hospitalization)
  Sender: FDA-Public Use
  Company Number: 04P-163-0270200-00

PATIENT
  Age: 58 Year
  Sex: Female
  Weight: 77.1115 kg

DRUGS (5)
  1. HUMIRA [Suspect]
     Indication: RHEUMATOID ARTHRITIS
     Dosage: 40 MG, SUBCUTANEOUS
     Route: 058
     Dates: start: 20040201
  2. BELLAMINE-S [Concomitant]
  3. CELECOXIB [Concomitant]
  4. DARVOCET [Concomitant]
  5. FENTANYL [Concomitant]

REACTIONS (2)
  - INJECTION SITE BURNING [None]
  - PNEUMONIA [None]
